FAERS Safety Report 4442082-7 (Version None)
Quarter: 2004Q3

REPORT INFORMATION
  Report Type: 
  Country: None (occurrence: None)
  Receive Date: 20040903
  Receipt Date: 20040514
  Transmission Date: 20050211
  Serious: Yes (Hospitalization)
  Sender: FDA-Public Use
  Company Number: 2004UW10449

PATIENT
  Age: 60 Year
  Sex: Female

DRUGS (4)
  1. CRESTOR [Suspect]
     Dosage: 10 MG
  2. INSULIN [Concomitant]
  3. COUMADIN [Concomitant]
  4. ANTIHYPERTENSIVES [Concomitant]

REACTIONS (1)
  - PANCREATITIS [None]
